FAERS Safety Report 4875085-9 (Version None)
Quarter: 2006Q1

REPORT INFORMATION
  Report Type: 
  Country: None (occurrence: None)
  Receive Date: 20060109
  Receipt Date: 20060103
  Transmission Date: 20060701
  Serious: Yes (Life-Threatening, Other)
  Sender: FDA-Public Use
  Company Number: US-GLAXOSMITHKLINE-A0587553A

PATIENT
  Age: 57 Year
  Sex: Male

DRUGS (9)
  1. PAXIL [Suspect]
     Indication: DRUG USE FOR UNKNOWN INDICATION
     Dosage: 20MG PER DAY
     Route: 048
     Dates: start: 20051221, end: 20051222
  2. VALPROIC ACID [Concomitant]
  3. POTASSIUM [Concomitant]
  4. PROTONIX [Concomitant]
  5. MORPHINE [Concomitant]
  6. ATIVAN [Concomitant]
  7. MAALOX FAST BLOCKER [Concomitant]
  8. DUONEB [Concomitant]
  9. TYLENOL [Concomitant]

REACTIONS (2)
  - HYPERTHERMIA [None]
  - NEUROLEPTIC MALIGNANT SYNDROME [None]
